FAERS Safety Report 25908910 (Version 2)
Quarter: 2025Q4

REPORT INFORMATION
  Report Type: Report from Study
  Country: US (occurrence: US)
  Receive Date: 20251011
  Receipt Date: 20251221
  Transmission Date: 20260117
  Serious: No
  Sender: SANOFI AVENTIS
  Company Number: US-SA-2025SA302790

PATIENT
  Age: 31 Year
  Sex: Female

DRUGS (1)
  1. DUPILUMAB [Suspect]
     Active Substance: DUPILUMAB
     Indication: Chronic spontaneous urticaria
     Dosage: 300 MG, QOW
     Route: 058
     Dates: start: 20200101

REACTIONS (4)
  - Dyspnoea [Unknown]
  - Dysphagia [Unknown]
  - Speech disorder [Unknown]
  - Illness [Unknown]

NARRATIVE: CASE EVENT DATE: 20251201
